FAERS Safety Report 11336112 (Version 1)
Quarter: 2015Q3

REPORT INFORMATION
  Report Type: Spontaneous
  Country: ES (occurrence: ES)
  Receive Date: 20150804
  Receipt Date: 20150804
  Transmission Date: 20151125
  Serious: Yes (Hospitalization)
  Sender: FDA-Public Use
  Company Number: ES-BAXALTA-2015BLT000712

PATIENT

DRUGS (1)
  1. PREFLUCEL [Suspect]
     Active Substance: INFLUENZA VIRUS VACCINE
     Indication: INFLUENZA IMMUNISATION
     Route: 042

REACTIONS (4)
  - Miller Fisher syndrome [Recovering/Resolving]
  - Respiratory failure [None]
  - Guillain-Barre syndrome [Recovering/Resolving]
  - Bundle branch block right [None]
